FAERS Safety Report 9432302 (Version 1)
Quarter: 2013Q3

REPORT INFORMATION
  Report Type: Spontaneous
  Country: AU (occurrence: AU)
  Receive Date: 20130731
  Receipt Date: 20130731
  Transmission Date: 20140515
  Serious: Yes (Other)
  Sender: FDA-Public Use
  Company Number: AU-ROCHE-1254726

PATIENT
  Age: 59 Year
  Sex: Female

DRUGS (6)
  1. HERCEPTIN [Suspect]
     Indication: PRODUCT USED FOR UNKNOWN INDICATION
     Route: 065
     Dates: start: 2005
  2. XELODA [Suspect]
     Indication: PRODUCT USED FOR UNKNOWN INDICATION
     Route: 065
     Dates: start: 201203
  3. PACLITAXEL [Concomitant]
     Route: 065
     Dates: start: 2001
  4. DOCETAXEL [Concomitant]
     Route: 065
     Dates: start: 2005
  5. VINORELBINE [Concomitant]
     Route: 065
     Dates: start: 201301
  6. LAPATINIB [Concomitant]
     Route: 065
     Dates: start: 201203

REACTIONS (1)
  - Disease progression [Unknown]
